FAERS Safety Report 7942984-0 (Version None)
Quarter: 2011Q4

REPORT INFORMATION
  Report Type: 
  Country: None (occurrence: None)
  Receive Date: 20111128
  Receipt Date: 20111115
  Transmission Date: 20120403
  Serious: Yes (Hospitalization, Disabling)
  Sender: FDA-Public Use
  Company Number: AU-CELGENEUS-008-50794-11091882

PATIENT
  Sex: Male
  Weight: 84.5 kg

DRUGS (2)
  1. VIDAZA [Suspect]
     Route: 065
     Dates: start: 20110808, end: 20110816
  2. VIDAZA [Suspect]
     Route: 065
     Dates: start: 20110905, end: 20110913

REACTIONS (3)
  - INJECTION SITE PAIN [None]
  - LYMPHANGITIS [None]
  - NEUTROPENIA [None]
